FAERS Safety Report 7743960-3 (Version None)
Quarter: 2011Q3

REPORT INFORMATION
  Report Type: 
  Country: None (occurrence: None)
  Receive Date: 20110912
  Receipt Date: 20110901
  Transmission Date: 20111222
  Serious: Yes (Hospitalization)
  Sender: FDA-Public Use
  Company Number: FI-GLAXOSMITHKLINE-B0746106A

PATIENT
  Sex: Male

DRUGS (6)
  1. RITUXIMAB [Suspect]
     Indication: CHRONIC LYMPHOCYTIC LEUKAEMIA
     Dosage: 1050MG MONTHLY
     Route: 042
     Dates: start: 20110131
  2. METOPROLOL SUCCINATE [Concomitant]
  3. SIMVASTATIN [Concomitant]
  4. CHLORAMBUCIL [Suspect]
     Indication: CHRONIC LYMPHOCYTIC LEUKAEMIA
     Dosage: 20MG PER DAY
     Route: 048
     Dates: start: 20110131
  5. ASPIRIN [Concomitant]
  6. AMILORIDE HCL AND HYDROCHLOROTHIAZIDE [Concomitant]

REACTIONS (1)
  - SINUSITIS [None]
